FAERS Safety Report 10263732 (Version 1)
Quarter: 2014Q2

REPORT INFORMATION
  Report Type: Spontaneous
  Country: US (occurrence: US)
  Receive Date: 20140627
  Receipt Date: 20140627
  Transmission Date: 20141212
  Serious: No
  Sender: FDA-Public Use
  Company Number: US-GILEAD-2014-0106857

PATIENT
  Sex: Male

DRUGS (16)
  1. LETAIRIS [Suspect]
     Indication: PULMONARY ARTERIAL HYPERTENSION
     Dosage: 5 MG, QD
     Route: 065
     Dates: start: 20120207
  2. GABAPENTIN [Concomitant]
  3. PREDNISONE [Concomitant]
  4. ADVAIR [Concomitant]
  5. COMBIVENT [Concomitant]
  6. TRAVATAN Z [Concomitant]
  7. NOVOLOG [Concomitant]
  8. LANTUS [Concomitant]
  9. LYRICA [Concomitant]
  10. FENOFIBRATE [Concomitant]
  11. WARFARIN [Concomitant]
  12. ISOSORBIDE [Concomitant]
  13. COLCHICINE [Concomitant]
  14. LASIX                              /00032601/ [Concomitant]
  15. AMITRIPTYLINE [Concomitant]
  16. NEXIUM                             /01479302/ [Concomitant]

REACTIONS (1)
  - Fall [Recovered/Resolved]
